FAERS Safety Report 18876792 (Version 1)
Quarter: 2021Q1

REPORT INFORMATION
  Report Type: Report from Study
  Country: AU (occurrence: AU)
  Receive Date: 20210211
  Receipt Date: 20210211
  Transmission Date: 20210420
  Serious: Yes (Hospitalization)
  Sender: FDA-Public Use
  Company Number: AU-ROCHE-2307135

PATIENT
  Age: 57 Year
  Sex: Male
  Weight: 99.2 kg

DRUGS (27)
  1. POLATUZUMAB VEDOTIN. [Suspect]
     Active Substance: POLATUZUMAB VEDOTIN
     Indication: DIFFUSE LARGE B-CELL LYMPHOMA
     Dosage: DATE OF MOST RECENT DOSE (178.56 MG) OF BLINDED POLATUZUMAB VEDOTIN PRIOR TO SAE ONSET: 10/APR/2019
     Route: 042
     Dates: start: 20190410
  2. RITUXIMAB. [Suspect]
     Active Substance: RITUXIMAB
     Indication: DIFFUSE LARGE B-CELL LYMPHOMA
     Dosage: DATE OF MOST RECENT DOSE OF RITUXIMAB PRIOR TO SAE ONSET: 09/APR/2019 (828.75 MG)
     Route: 041
     Dates: start: 20190409
  3. CYCLOPHOSPHAMIDE. [Suspect]
     Active Substance: CYCLOPHOSPHAMIDE
     Indication: DIFFUSE LARGE B-CELL LYMPHOMA
     Dosage: DATE OF MOST RECENT DOSE OF CYCLOPHOSPHAMIDE PRIOR TO SAE ONSET: 10/APR/2019 (1700 MG)
     Route: 042
     Dates: start: 20190410
  4. ASPIRIN. [Concomitant]
     Active Substance: ASPIRIN
     Dosage: CARDIOVASCULAR PROPHYLASIX
     Route: 048
  5. PEGFILGRASTIM [Concomitant]
     Active Substance: PEGFILGRASTIM
     Route: 058
     Dates: start: 20190411, end: 20190725
  6. DOXORUBICIN [Suspect]
     Active Substance: DOXORUBICIN
     Indication: DIFFUSE LARGE B-CELL LYMPHOMA
     Dosage: DATE OF MOST RECENT DOSE OF DOXORUBICIN PRIOR TO SAE ONSET: 10/APR/2019 (110 MG)
     Route: 042
     Dates: start: 20190410
  7. ALLOPURINOL. [Concomitant]
     Active Substance: ALLOPURINOL
     Dosage: PROPHYLAXIS FOR TUMOR LYSIS SYNDROME
     Route: 048
     Dates: start: 20190329, end: 20190423
  8. NOVOMIX [Concomitant]
     Active Substance: INSULIN ASPART
     Dosage: NOVOMIX 40 US NOCTE
     Route: 058
     Dates: start: 20190329
  9. PLACEBO [Suspect]
     Active Substance: UNSPECIFIED INGREDIENT
     Indication: DIFFUSE LARGE B-CELL LYMPHOMA
     Dosage: DATE OF MOST RECENT DOSE OF BLINDED VINCRISTINE PRIOR TO SAE ONSET: 10/APR/2019
     Route: 042
     Dates: start: 20190410
  10. OMEPRAZOLE. [Concomitant]
     Active Substance: OMEPRAZOLE
     Indication: GASTROOESOPHAGEAL REFLUX DISEASE
     Route: 048
  11. BACTRIM [Concomitant]
     Active Substance: SULFAMETHOXAZOLE\TRIMETHOPRIM
     Route: 048
     Dates: start: 20190409
  12. PALONOSETRON. [Concomitant]
     Active Substance: PALONOSETRON HYDROCHLORIDE
     Route: 042
     Dates: start: 20190410, end: 20190410
  13. PREDNISONE. [Suspect]
     Active Substance: PREDNISONE
     Indication: DIFFUSE LARGE B-CELL LYMPHOMA
     Dosage: DATE OF MOST RECENT DOSE OF PREDNISONE PRIOR TO SAE ONSET: 09/APR/2019 (100 MG)?ON DAYS 1?5 OF EVERY
     Route: 048
     Dates: start: 20190409
  14. CRESTOR [Concomitant]
     Active Substance: ROSUVASTATIN CALCIUM
     Indication: HYPERCHOLESTEROLAEMIA
     Route: 048
  15. RAMIPRIL. [Concomitant]
     Active Substance: RAMIPRIL
     Indication: HYPERTENSION
     Route: 048
  16. RANITIDINE. [Concomitant]
     Active Substance: RANITIDINE
     Indication: GASTROOESOPHAGEAL REFLUX DISEASE
     Route: 048
  17. ENDONE [Concomitant]
     Active Substance: OXYCODONE HYDROCHLORIDE
     Indication: ABDOMINAL PAIN
     Route: 048
     Dates: start: 20190408
  18. PARACETAMOL [Concomitant]
     Active Substance: ACETAMINOPHEN
     Dosage: PREMEDICATION FOR POLATUZUMAB VEDOTIN
     Route: 048
     Dates: start: 20190410, end: 20190410
  19. ONDASETRON [Concomitant]
     Active Substance: ONDANSETRON
     Route: 048
     Dates: start: 20190417, end: 20191016
  20. NOVOMIX [Concomitant]
     Active Substance: INSULIN ASPART
     Dosage: NOVOMIX 20US MIDI
     Route: 058
     Dates: start: 20190329
  21. PARACETAMOL [Concomitant]
     Active Substance: ACETAMINOPHEN
     Indication: PREMEDICATION
     Dosage: PREMEDICATION FOR RITUXUMAB
     Route: 048
     Dates: start: 20190409, end: 20190409
  22. LORATADINE. [Concomitant]
     Active Substance: LORATADINE
     Indication: PREMEDICATION
     Dosage: PREMEDICATION FOR RITUXUMAB
     Route: 048
     Dates: start: 20190409, end: 20190409
  23. NOVOMIX [Concomitant]
     Active Substance: INSULIN ASPART
     Indication: TYPE 2 DIABETES MELLITUS
     Dosage: NOVOMIX 32 US MANE?32 UNIT
     Route: 058
     Dates: start: 20190329
  24. LORATADINE. [Concomitant]
     Active Substance: LORATADINE
     Dosage: PREMEDICATION FOR POLATUZUMAB VEDOTIN
     Route: 048
     Dates: start: 20190410, end: 20190410
  25. ONDASETRON [Concomitant]
     Active Substance: ONDANSETRON
     Indication: VOMITING
     Route: 042
     Dates: start: 20190417, end: 20190417
  26. DIABEX [Concomitant]
     Active Substance: METFORMIN HYDROCHLORIDE
     Indication: TYPE 2 DIABETES MELLITUS
     Route: 048
  27. AVASTIN [Concomitant]
     Active Substance: BEVACIZUMAB
     Dosage: QM
     Route: 047

REACTIONS (1)
  - Epigastric discomfort [Recovered/Resolved]

NARRATIVE: CASE EVENT DATE: 20190421
